FAERS Safety Report 8575780-4 (Version None)
Quarter: 2012Q3

REPORT INFORMATION
  Report Type: 
  Country: None (occurrence: None)
  Receive Date: 20120807
  Receipt Date: 20120802
  Transmission Date: 20120928
  Serious: Yes (Death, Other)
  Sender: FDA-Public Use
  Company Number: MX-SANOFI-AVENTIS-2012SA055311

PATIENT
  Age: 83 Year
  Sex: Female

DRUGS (3)
  1. CLOPIDOGREL BISULFATE AND ASPIRIN [Suspect]
     Indication: THROMBOSIS PROPHYLAXIS
     Dosage: DOSE: (CLOPIDOGREL + ACETHYLSALICYLIC ACID) = (75 MG + 100 MG)
     Route: 048
     Dates: start: 20110801, end: 20120225
  2. DRONEDARONE HCL [Suspect]
     Indication: ATRIAL FIBRILLATION
     Route: 048
     Dates: start: 20110801, end: 20120225
  3. ISOSORBIDE [Concomitant]
     Route: 048
     Dates: end: 20120225

REACTIONS (3)
  - CEREBROVASCULAR ACCIDENT [None]
  - DISORIENTATION [None]
  - LOSS OF CONSCIOUSNESS [None]
